FAERS Safety Report 10056645 (Version 3)
Quarter: 2014Q2

REPORT INFORMATION
  Report Type: Spontaneous
  Country: US (occurrence: US)
  Receive Date: 20140403
  Receipt Date: 20140625
  Transmission Date: 20141212
  Serious: Yes (Other)
  Sender: FDA-Public Use
  Company Number: US-PFIZER INC-2014092827

PATIENT
  Age: 57 Year
  Sex: Female

DRUGS (5)
  1. LIPITOR [Suspect]
     Indication: LOW DENSITY LIPOPROTEIN INCREASED
     Dosage: 40 MG, DAILY
     Route: 048
     Dates: start: 2010, end: 2011
  2. LIPITOR [Suspect]
     Indication: CARDIOVASCULAR EVENT PROPHYLAXIS
     Dosage: 20 MG, DAILY
     Route: 048
     Dates: start: 2011, end: 2013
  3. QUINAPRIL [Concomitant]
     Indication: HYPERTENSION
     Dosage: 40 MG, DAILY
     Dates: start: 1994, end: 2014
  4. HYDROCHLOROTHIAZIDE [Concomitant]
     Indication: HYPERTENSION
     Dosage: 25 MG, DAILY
     Dates: start: 1994, end: 2014
  5. VITAMIN D3 [Concomitant]
     Indication: BLOOD CALCIUM DECREASED
     Dosage: 50000 IU, UNK
     Dates: start: 2012, end: 2014

REACTIONS (3)
  - Type 2 diabetes mellitus [Not Recovered/Not Resolved]
  - Blindness transient [Unknown]
  - Hypoaesthesia [Not Recovered/Not Resolved]
